FAERS Safety Report 5517808-1 (Version None)
Quarter: 2007Q4

REPORT INFORMATION
  Report Type: 
  Country: None (occurrence: None)
  Receive Date: 20071113
  Receipt Date: 20071101
  Transmission Date: 20080405
  Serious: Yes (Hospitalization)
  Sender: FDA-Public Use
  Company Number: 2007SP003704

PATIENT
  Age: 92 Year
  Sex: Female
  Weight: 54.4316 kg

DRUGS (8)
  1. XOPENEX [Suspect]
     Indication: ASTHMA
     Dosage: 0.63 MG/3ML;BID;INHALATION , 0.63 MG/3ML;TID;INHALATION , 0.63 MG/3ML;QD;INHALATION
     Route: 055
     Dates: start: 20050101, end: 20071001
  2. XOPENEX [Suspect]
     Indication: ASTHMA
     Dosage: 0.63 MG/3ML;BID;INHALATION , 0.63 MG/3ML;TID;INHALATION , 0.63 MG/3ML;QD;INHALATION
     Route: 055
     Dates: start: 20071001, end: 20071001
  3. XOPENEX [Suspect]
     Indication: ASTHMA
     Dosage: 0.63 MG/3ML;BID;INHALATION , 0.63 MG/3ML;TID;INHALATION , 0.63 MG/3ML;QD;INHALATION
     Route: 055
     Dates: start: 20071101
  4. PULMICORT [Concomitant]
  5. VERAPAMIL [Concomitant]
  6. OXYGEN [Concomitant]
  7. VITAMINS [Concomitant]
  8. SOLU-MEDROL [Concomitant]

REACTIONS (9)
  - BRONCHIECTASIS [None]
  - CHRONIC OBSTRUCTIVE PULMONARY DISEASE [None]
  - COUGH [None]
  - HEART RATE INCREASED [None]
  - NASOPHARYNGITIS [None]
  - PULMONARY THROMBOSIS [None]
  - UPPER RESPIRATORY TRACT INFECTION [None]
  - VIRAL INFECTION [None]
  - WEIGHT INCREASED [None]
